FAERS Safety Report 5196359-0 (Version None)
Quarter: 2006Q4

REPORT INFORMATION
  Report Type: 
  Country: None (occurrence: None)
  Receive Date: 20061222
  Receipt Date: 20061208
  Transmission Date: 20070319
  Serious: Yes (Death)
  Sender: FDA-Public Use
  Company Number: 2006150743

PATIENT
  Age: 72 Year
  Sex: Male

DRUGS (4)
  1. HALCION [Suspect]
     Indication: INSOMNIA
     Dosage: ORAL
     Route: 048
  2. DIGOXIN [Suspect]
     Dosage: ORAL
     Route: 048
  3. ALL OTHER THERAPEUTIC PRODUCTS [Concomitant]
  4. SPIRIVA [Concomitant]

REACTIONS (2)
  - COMPLETED SUICIDE [None]
  - POISONING DELIBERATE [None]
